FAERS Safety Report 8871521 (Version 2)
Quarter: 2012Q4

REPORT INFORMATION
  Report Type: 
  Country: KR (occurrence: KR)
  Receive Date: 20121030
  Receipt Date: 20121106
  Transmission Date: 20130627
  Serious: Yes (Death, Hospitalization)
  Sender: FDA-Public Use
  Company Number: KR-UCBSA-069319

PATIENT
  Age: 62 Year
  Sex: Female
  Weight: 59.4 kg

DRUGS (16)
  1. KEPPRA [Suspect]
     Indication: EPILEPSY
     Route: 048
     Dates: start: 20120229, end: 20120621
  2. KEPPRA [Suspect]
     Indication: EPILEPSY
     Route: 048
     Dates: start: 20120624, end: 20120906
  3. DACOMITINIB [Suspect]
     Indication: NON-SMALL CELL LUNG CANCER
     Dosage: 45 MG (DAILY ON CYCLE 1 DAY 1 THROUGH CYCLE 1 DAY 10 AND CYCLE 1 DAY 15 ONWARDS)
     Route: 048
     Dates: start: 20120321, end: 20120612
  4. DACOMITINIB [Suspect]
     Indication: NON-SMALL CELL LUNG CANCER
     Dosage: 30 MG (DAILY ON CYCLE 1 DAY 1 THROUGH CYCLE 1 DAY 10 AND CYCLE 1 DAY 15 ONWARDS)
     Route: 048
     Dates: start: 20120620, end: 20120904
  5. CRAVIT [Concomitant]
     Indication: INFECTION
     Dates: start: 20120229, end: 20121007
  6. HYDROCORTISONE [Concomitant]
     Indication: DERMATITIS ACNEIFORM
     Dates: start: 20120324, end: 20120905
  7. HYDROCORTISONE [Concomitant]
     Indication: DERMATITIS ACNEIFORM
     Dosage: LOTION-1%
     Dates: start: 20120324, end: 20120905
  8. OXYCONTIN CR [Concomitant]
     Indication: FLANK PAIN
     Dates: start: 20120321
  9. STILLEN [Concomitant]
     Indication: DYSPEPSIA
     Dates: start: 20120410
  10. EBASTEL [Concomitant]
     Indication: DERMATITIS ACNEIFORM
     Dates: start: 20120420, end: 20120905
  11. UCERAX [Concomitant]
     Indication: DERMATITIS ACNEIFORM
     Dates: start: 20120420, end: 20120905
  12. BACTROBAN [Concomitant]
     Indication: PARONYCHIA
     Dates: start: 20120418, end: 20121007
  13. OPTIDERM [Concomitant]
     Indication: TINEA PEDIS
     Dates: start: 20120411, end: 20120905
  14. DESOWEN [Concomitant]
     Indication: DERMATITIS ACNEIFORM
     Dates: start: 20120613, end: 20121007
  15. DESOWEN [Concomitant]
     Indication: PRURITUS
     Dates: start: 20120613, end: 20121007
  16. DEXALTIN NK [Concomitant]
     Indication: STOMATITIS
     Dates: start: 20120709, end: 20121007

REACTIONS (3)
  - Platelet count decreased [Fatal]
  - Febrile neutropenia [Fatal]
  - Anaemia [Fatal]
